FAERS Safety Report 7422973-5 (Version None)
Quarter: 2011Q2

REPORT INFORMATION
  Report Type: 
  Country: None (occurrence: None)
  Receive Date: 20110419
  Receipt Date: 20110411
  Transmission Date: 20111010
  Serious: Yes (Other)
  Sender: FDA-Public Use
  Company Number: SE-BRISTOL-MYERS SQUIBB COMPANY-15667645

PATIENT

DRUGS (1)
  1. ORENCIA [Suspect]
     Dosage: AUTHORIZATION NUMBER:125118

REACTIONS (1)
  - ATRIAL FIBRILLATION [None]
